FAERS Safety Report 17488973 (Version 4)
Quarter: 2020Q2

REPORT INFORMATION
  Report Type: Report from Study
  Country: US (occurrence: US)
  Receive Date: 20200303
  Receipt Date: 20200521
  Transmission Date: 20200713
  Serious: Yes (Other)
  Sender: FDA-Public Use
  Company Number: US-PFIZER INC-2020049884

PATIENT
  Age: 41 Year
  Sex: Female

DRUGS (4)
  1. IBRANCE [Suspect]
     Active Substance: PALBOCICLIB
     Dosage: 75 MG, CYCLIC (DAILY FOR 21 DAYS OF 28 DAY CYCLE)
     Route: 048
     Dates: start: 20191225
  2. IBRANCE [Suspect]
     Active Substance: PALBOCICLIB
     Dosage: 100 MG, DAILY
     Route: 048
     Dates: start: 20191228, end: 20200118
  3. IBRANCE [Suspect]
     Active Substance: PALBOCICLIB
     Dosage: 75 MG, CYCLIC (DAILY FOR 21 DAYS OF 28 DAY CYCLE)
     Route: 048
     Dates: start: 20200129, end: 20200302
  4. IBRANCE [Suspect]
     Active Substance: PALBOCICLIB
     Indication: BREAST CANCER FEMALE
     Dosage: 75 MG, CYCLIC (DAILY FOR 21 DAYS OF 28 DAY CYCLE)
     Route: 048
     Dates: start: 20191225

REACTIONS (11)
  - Bone marrow failure [Unknown]
  - Acne [Recovering/Resolving]
  - Constipation [Recovered/Resolved]
  - Leukopenia [Recovered/Resolved]
  - Bone pain [Not Recovered/Not Resolved]
  - Axillary pain [Unknown]
  - Hyperhidrosis [Recovered/Resolved]
  - Fatigue [Unknown]
  - Hypoaesthesia [Unknown]
  - Influenza [Recovered/Resolved]
  - Pain in extremity [Not Recovered/Not Resolved]

NARRATIVE: CASE EVENT DATE: 20200302
